FAERS Safety Report 9651076 (Version 1)
Quarter: 2013Q4

REPORT INFORMATION
  Report Type: Spontaneous
  Country: US (occurrence: US)
  Receive Date: 20131029
  Receipt Date: 20131029
  Transmission Date: 20140711
  Serious: No
  Sender: FDA-Public Use
  Company Number: US-PFIZER INC-2013307087

PATIENT
  Age: 59 Year
  Sex: Female
  Weight: 90.7 kg

DRUGS (2)
  1. LYRICA [Suspect]
     Indication: FIBROMYALGIA
     Dosage: UNK
     Dates: start: 2011
  2. LYRICA [Suspect]
     Dosage: UNK, 100 MG IN THE MORNING AND 150 MG AT NIGHT (TWO TIMES A DAY)
     Dates: start: 201304

REACTIONS (3)
  - Vision blurred [Unknown]
  - Local swelling [Unknown]
  - Lip swelling [Unknown]
